FAERS Safety Report 25177333 (Version 1)
Quarter: 2025Q2

REPORT INFORMATION
  Report Type: Report from Study
  Country: BR (occurrence: BR)
  Receive Date: 20250409
  Receipt Date: 20250409
  Transmission Date: 20250717
  Serious: Yes (Other)
  Sender: JOHNSON AND JOHNSON
  Company Number: BR-JNJFOC-20250401935

PATIENT
  Age: 55 Year
  Sex: Female
  Weight: 72 kg

DRUGS (3)
  1. GOLIMUMAB [Suspect]
     Active Substance: GOLIMUMAB
     Indication: Rheumatoid arthritis
     Route: 058
  2. GOLIMUMAB [Suspect]
     Active Substance: GOLIMUMAB
  3. GOLIMUMAB [Suspect]
     Active Substance: GOLIMUMAB

REACTIONS (8)
  - Rheumatoid arthritis [Unknown]
  - Rhinitis allergic [Unknown]
  - Discomfort [Unknown]
  - Fatigue [Unknown]
  - Urine analysis abnormal [Unknown]
  - Sinusitis [Not Recovered/Not Resolved]
  - Allergic bronchitis [Not Recovered/Not Resolved]
  - Nasopharyngitis [Unknown]

NARRATIVE: CASE EVENT DATE: 20250301
